FAERS Safety Report 14191304 (Version 1)
Quarter: 2017Q4

REPORT INFORMATION
  Report Type: Other
  Country: FR (occurrence: FR)
  Receive Date: 20171115
  Receipt Date: 20171115
  Transmission Date: 20180321
  Serious: Yes (Hospitalization, Other)
  Sender: FDA-Public Use
  Company Number: FR-EMCURE PHARMS-2017HTG00339

PATIENT
  Sex: Female

DRUGS (14)
  1. BICNU [Suspect]
     Active Substance: CARMUSTINE
     Indication: CENTRAL NERVOUS SYSTEM LYMPHOMA
     Dosage: 154 MG, UNK
     Route: 042
     Dates: start: 20170514, end: 20170915
  2. ETOPOSIDE. [Suspect]
     Active Substance: ETOPOSIDE
     Indication: CENTRAL NERVOUS SYSTEM LYMPHOMA
     Dosage: 104 MG, PER CYCLE
     Route: 042
     Dates: start: 20170513, end: 20170914
  3. BACTRIM [Concomitant]
     Active Substance: SULFAMETHOXAZOLE\TRIMETHOPRIM
  4. METOCLOPRAMIDE. [Suspect]
     Active Substance: METOCLOPRAMIDE
     Indication: PRODUCT USED FOR UNKNOWN INDICATION
     Dosage: UNK
     Route: 048
     Dates: end: 201709
  5. VALACYCLOVIR [Concomitant]
     Active Substance: VALACYCLOVIR HYDROCHLORIDE
  6. BISOPROLOL FUMARATE. [Concomitant]
     Active Substance: BISOPROLOL FUMARATE
  7. PARACETAMOL [Concomitant]
     Active Substance: ACETAMINOPHEN
     Dosage: 1 G, UNK
     Route: 048
     Dates: start: 20170512
  8. METHOTREXATE (MERCK) [Suspect]
     Active Substance: METHOTREXATE
     Indication: CENTRAL NERVOUS SYSTEM LYMPHOMA
     Dosage: 3050 MG, PER CYCLE
     Route: 042
     Dates: start: 20170512, end: 20170927
  9. POLARAMINE [Suspect]
     Active Substance: DEXCHLORPHENIRAMINE MALEATE
     Indication: PROPHYLAXIS
     Dosage: 5 MG, PER CYCLE
     Route: 042
     Dates: start: 20170512, end: 20170914
  10. AMLODIPINE [Concomitant]
     Active Substance: AMLODIPINE BESYLATE
     Dosage: UNK
  11. ESOMEPRAZOLE [Suspect]
     Active Substance: ESOMEPRAZOLE
     Indication: PRODUCT USED FOR UNKNOWN INDICATION
     Dosage: 20 MG, 1X/DAY
     Route: 048
     Dates: end: 201709
  12. MABTHERA [Suspect]
     Active Substance: RITUXIMAB
     Indication: CENTRAL NERVOUS SYSTEM LYMPHOMA
     Dosage: 580 MG, PER CYCLE
     Route: 042
     Dates: start: 20170512, end: 20170914
  13. CORTANCYL [Concomitant]
     Active Substance: PREDNISONE
     Dosage: 93 MG, 1X/DAY
     Route: 048
     Dates: start: 20170512
  14. MACROGOL [Suspect]
     Active Substance: POLYETHYLENE GLYCOLS
     Indication: PRODUCT USED FOR UNKNOWN INDICATION
     Dosage: UNK
     Route: 048
     Dates: end: 201709

REACTIONS (8)
  - Pneumonia [Unknown]
  - Pneumonitis [Unknown]
  - Oedema peripheral [Unknown]
  - Acute pulmonary oedema [Unknown]
  - Interstitial lung disease [Unknown]
  - Lung disorder [Not Recovered/Not Resolved]
  - Organising pneumonia [Unknown]
  - Pneumocystis jirovecii pneumonia [Unknown]

NARRATIVE: CASE EVENT DATE: 2017
